FAERS Safety Report 16970070 (Version 2)
Quarter: 2019Q4

REPORT INFORMATION
  Report Type: Spontaneous
  Country: US (occurrence: US)
  Receive Date: 20191029
  Receipt Date: 20191108
  Transmission Date: 20200122
  Serious: Yes (Other)
  Sender: FDA-Public Use
  Company Number: US-PFIZER INC-2019464380

PATIENT
  Age: 57 Year
  Sex: Male

DRUGS (6)
  1. CEFTRIAXONE SODIUM. [Suspect]
     Active Substance: CEFTRIAXONE SODIUM
     Indication: EVIDENCE BASED TREATMENT
     Dosage: UNK
  2. ZOSYN [Concomitant]
     Active Substance: PIPERACILLIN SODIUM\TAZOBACTAM SODIUM
     Indication: PYREXIA
     Dosage: UNK
  3. VANCOMYCIN HCL [Suspect]
     Active Substance: VANCOMYCIN HYDROCHLORIDE
     Indication: EVIDENCE BASED TREATMENT
     Dosage: UNK
  4. CEFTRIAXONE SODIUM. [Suspect]
     Active Substance: CEFTRIAXONE SODIUM
     Indication: PYREXIA
  5. VANCOMYCIN HCL [Suspect]
     Active Substance: VANCOMYCIN HYDROCHLORIDE
     Indication: PYREXIA
  6. AZTREONAM. [Concomitant]
     Active Substance: AZTREONAM
     Indication: PYREXIA
     Dosage: UNK

REACTIONS (1)
  - Tubulointerstitial nephritis [Unknown]
